FAERS Safety Report 15934997 (Version 11)
Quarter: 2019Q2

REPORT INFORMATION
  Report Type: Report from Study
  Country: MX (occurrence: MX)
  Receive Date: 20190207
  Receipt Date: 20190530
  Transmission Date: 20190711
  Serious: Yes (Other)
  Sender: FDA-Public Use
  Company Number: MX-SHIRE-MX201903264

PATIENT

DRUGS (3)
  1. ELAPRASE [Suspect]
     Active Substance: IDURSULFASE
     Dosage: 6MG, 1X/WEEK
     Route: 042
  2. ELAPRASE [Suspect]
     Active Substance: IDURSULFASE
     Dosage: UNK
     Route: 065
  3. ELAPRASE [Suspect]
     Active Substance: IDURSULFASE
     Indication: MUCOPOLYSACCHARIDOSIS II
     Dosage: 2 DOSAGE FORM
     Route: 042

REACTIONS (9)
  - Device related infection [Unknown]
  - Influenza [Unknown]
  - Malaise [Recovered/Resolved]
  - Infusion site extravasation [Unknown]
  - Pyrexia [Unknown]
  - Poor venous access [Unknown]
  - Nasopharyngitis [Unknown]
  - Vein disorder [Unknown]
  - Diarrhoea [Unknown]
